FAERS Safety Report 19655357 (Version 1)
Quarter: 2021Q3

REPORT INFORMATION
  Report Type: Report from Study
  Country: US (occurrence: US)
  Receive Date: 20210804
  Receipt Date: 20210804
  Transmission Date: 20211014
  Serious: Yes (Hospitalization)
  Sender: FDA-Public Use
  Company Number: US-INSMED, INC.-2021-08837-US

PATIENT
  Age: 74 Year
  Sex: Male

DRUGS (1)
  1. ARIKAYCE [Suspect]
     Active Substance: AMIKACIN
     Indication: MYCOBACTERIAL INFECTION
     Dosage: 590 MILLIGRAM, QD
     Route: 055
     Dates: start: 202106

REACTIONS (10)
  - Dyspnoea [Unknown]
  - Pneumonia [Unknown]
  - Night sweats [Unknown]
  - Cough [Not Recovered/Not Resolved]
  - Pulmonary oedema [Unknown]
  - Glossodynia [Unknown]
  - Pyrexia [Unknown]
  - Hospitalisation [Unknown]
  - Oropharyngeal candidiasis [Unknown]
  - Dysphonia [Unknown]

NARRATIVE: CASE EVENT DATE: 2021
